FAERS Safety Report 10331746 (Version 1)
Quarter: 2014Q3

REPORT INFORMATION
  Report Type: Spontaneous
  Country: ES (occurrence: ES)
  Receive Date: 20140722
  Receipt Date: 20140722
  Transmission Date: 20150326
  Serious: Yes (Hospitalization, Other)
  Sender: FDA-Public Use
  Company Number: ES-WATSON-2014-15511

PATIENT
  Age: 73 Year
  Sex: Male

DRUGS (2)
  1. AZATHIOPRINE (UNKNOWN) [Suspect]
     Active Substance: AZATHIOPRINE
     Indication: CROHN^S DISEASE
     Dosage: 150 MG, DAILY
     Route: 065
  2. ALLOPURINOL (UNKNOWN) [Interacting]
     Active Substance: ALLOPURINOL
     Indication: HYPERURICAEMIA
     Dosage: 300 MG, DAILY
     Route: 065

REACTIONS (2)
  - Bone marrow failure [Recovered/Resolved]
  - Drug interaction [Recovered/Resolved]

NARRATIVE: CASE EVENT DATE: 201205
